FAERS Safety Report 5325960-6 (Version None)
Quarter: 2007Q2

REPORT INFORMATION
  Report Type: 
  Country: None (occurrence: None)
  Receive Date: 20070516
  Receipt Date: 20070430
  Transmission Date: 20071010
  Serious: No
  Sender: FDA-Public Use
  Company Number: A0649250A

PATIENT
  Age: 33 Year
  Sex: Female

DRUGS (10)
  1. EPZICOM [Suspect]
     Indication: DRUG USE FOR UNKNOWN INDICATION
     Dosage: 600MG PER DAY
     Route: 048
     Dates: start: 20070330
  2. AZITHROMYCIN [Concomitant]
  3. LEVAQUIN [Concomitant]
  4. PREDNISONE TAB [Concomitant]
  5. ZOLOFT [Concomitant]
  6. CYMBALTA [Concomitant]
  7. GABAPENTIN [Concomitant]
  8. NORVIR [Concomitant]
  9. REYATAZ [Concomitant]
  10. TENOFOVIR [Concomitant]

REACTIONS (1)
  - ALOPECIA [None]
